FAERS Safety Report 23900159 (Version 1)
Quarter: 2024Q2

REPORT INFORMATION
  Report Type: Report from Study
  Country: US (occurrence: US)
  Receive Date: 20240526
  Receipt Date: 20240526
  Transmission Date: 20240715
  Serious: Yes (Other)
  Sender: FDA-Public Use
  Company Number: US-ABBVIE-5771568

PATIENT
  Age: 54 Year
  Sex: Male
  Weight: 96 kg

DRUGS (18)
  1. VENCLEXTA [Suspect]
     Active Substance: VENETOCLAX
     Indication: Plasma cell myeloma
     Dosage: STRENGTH-100 MG,?THIRD LINE TREATMENT,?TAKE 8 TABLETS (800 MG TOTAL) BY MOUTH DAILY.
     Route: 048
     Dates: start: 20230818
  2. TOPROL XL [Concomitant]
     Active Substance: METOPROLOL SUCCINATE
     Indication: Product used for unknown indication
     Dosage: TAKE 12.5 MG BY MOUTH.?25 MG TABLET EXTENDED RELEASE 24 HR
     Route: 048
  3. ZOFRAN [Concomitant]
     Active Substance: ONDANSETRON HYDROCHLORIDE
     Indication: Back pain
     Dosage: NIGHTLY AS NEEDED FOR BACK/NECCK PAIN TAKE 8 MG BY MOUTH
     Route: 048
  4. ZOVIRAX [Concomitant]
     Active Substance: ACYCLOVIR
     Indication: Product used for unknown indication
     Route: 050
  5. NORVASC [Concomitant]
     Active Substance: AMLODIPINE BESYLATE
     Indication: Product used for unknown indication
     Route: 048
  6. HYGROTON [Concomitant]
     Active Substance: CHLORTHALIDONE
     Indication: Product used for unknown indication
     Route: 048
  7. DECADRON [Concomitant]
     Active Substance: DEXAMETHASONE
     Indication: Product used for unknown indication
     Dosage: STRENGTH- 4MG ?TAKE 3 PILLS (12 MG ) WEEKLY ON DAY 1 8 15 22 OF EACH CHEMO CYCLE
     Route: 048
  8. HYDRODIURIL [Concomitant]
     Active Substance: HYDROCHLOROTHIAZIDE
     Indication: Product used for unknown indication
     Route: 048
  9. SYNTHROID [Concomitant]
     Active Substance: LEVOTHYROXINE SODIUM
     Indication: Product used for unknown indication
     Dosage: TAKE 1 TABLET BY MOUTH
     Route: 048
  10. GLUCOPHAGE XR [Concomitant]
     Active Substance: METFORMIN HYDROCHLORIDE
     Indication: Product used for unknown indication
     Dosage: TAKE 500 MG BY MOUTH 2 TIMES A DAY. EXTENDED RELEASE 24 HR
     Route: 048
  11. PROTONIX [Concomitant]
     Active Substance: PANTOPRAZOLE SODIUM
     Indication: Product used for unknown indication
     Dosage: 20 MG TABLET, DELAYED RELEASE (DR/EC))
     Route: 048
  12. KLOR-CON [Concomitant]
     Active Substance: POTASSIUM CHLORIDE
     Indication: Product used for unknown indication
     Dosage: 10 MEQ TABLET, ER PARTICLES/CRYSTALS?TAKE 1 TABLET BY MOUTH TWICE DAILY WITH FOOD
  13. ALDACTONE [Concomitant]
     Active Substance: SPIRONOLACTONE
     Indication: Product used for unknown indication
     Dosage: TAKE 12.5 MG BY MOUTH. PATIENT TAKING DIFFERENT, TAKING HALF TABLET EVERY OTHER DAY? AND FULL TAB...
     Route: 048
  14. ZANAFLEX [Concomitant]
     Active Substance: TIZANIDINE HYDROCHLORIDE
     Indication: Product used for unknown indication
     Route: 048
  15. DESYREL [Concomitant]
     Active Substance: TRAZODONE HYDROCHLORIDE
     Indication: Insomnia
     Dosage: TAKE 50 MG BY MOUTH AT BEDTIME. TAKE 1 TO 2 TABLETS BY MOUTH NIGHTLY AS? NEEDED STRESS INDUCED IN...
     Route: 048
  16. FLONASE [Concomitant]
     Active Substance: FLUTICASONE PROPIONATE
     Indication: Product used for unknown indication
     Dosage: 50 MCG/SPRAY NASAL SPRAY?ADMINISTER 1 SPRAY INTO EACH NOSTRIL 2 (TWO) TIMES A DAY.
     Route: 045
  17. ROBAXIN [Concomitant]
     Active Substance: METHOCARBAMOL
     Indication: Back pain
     Dosage: TAKE 1 TO 2 TABLETS BY MOUTH NIGHTLY AS NEEDED FOR BACK/NECCK? PAIN (PATIENT NOT TAKING: REPORTED...
     Route: 050
  18. DEXAMETHASONE [Concomitant]
     Active Substance: DEXAMETHASONE
     Indication: Product used for unknown indication
     Dosage: DAYS 1,8,15,AND 22
     Route: 048
     Dates: start: 20230818

REACTIONS (12)
  - Hypertension [Unknown]
  - Hyperglycaemia [Unknown]
  - Decreased appetite [Unknown]
  - Nausea [Recovered/Resolved]
  - Hypokalaemia [Recovered/Resolved]
  - Hypogammaglobulinaemia [Unknown]
  - Laboratory test abnormal [Unknown]
  - Off label use [Unknown]
  - Fatigue [Unknown]
  - Infection [Unknown]
  - Large intestine polyp [Unknown]
  - Amyloidosis [Unknown]

NARRATIVE: CASE EVENT DATE: 20240328
